FAERS Safety Report 10699195 (Version 2)
Quarter: 2015Q1

REPORT INFORMATION
  Report Type: Spontaneous
  Country: US (occurrence: US)
  Receive Date: 20150108
  Receipt Date: 20150222
  Transmission Date: 20150721
  Serious: Yes (Hospitalization, Other)
  Sender: FDA-Public Use
  Company Number: US-ALLERGAN-1426519US

PATIENT
  Age: 26 Year
  Sex: Female

DRUGS (7)
  1. KLONOPIN [Concomitant]
     Active Substance: CLONAZEPAM
     Dosage: 0.5 MG, TID
     Route: 048
  2. PAXIL [Concomitant]
     Active Substance: PAROXETINE HYDROCHLORIDE
     Dosage: 30 MG, BID
     Route: 048
  3. SEROQUEL [Concomitant]
     Active Substance: QUETIAPINE FUMARATE
     Dosage: 0.05 MG, BID
     Route: 048
  4. TENEX [Concomitant]
     Active Substance: GUANFACINE HYDROCHLORIDE
     Indication: HEAD TITUBATION
     Dosage: 1 MG, TID
     Route: 048
  5. ARTANE [Concomitant]
     Active Substance: TRIHEXYPHENIDYL HYDROCHLORIDE
     Indication: DYSTONIA
  6. BOTOX [Suspect]
     Active Substance: ONABOTULINUMTOXINA
     Indication: DYSTONIA
     Dosage: 50 UNITS, SINGLE
     Dates: start: 20141022, end: 20141022
  7. BOTOX [Suspect]
     Active Substance: ONABOTULINUMTOXINA
     Indication: TORTICOLLIS
     Dosage: UNK, SINGLE
     Dates: start: 20141022, end: 20141022

REACTIONS (11)
  - Heart rate increased [Unknown]
  - Thyroid cyst [Unknown]
  - Dysphagia [Unknown]
  - Loss of consciousness [Unknown]
  - Off label use [Unknown]
  - Decreased appetite [Unknown]
  - Dyspnoea [Unknown]
  - Injection site pain [Unknown]
  - Tremor [Unknown]
  - Syncope [Unknown]
  - Hyperthyroidism [Unknown]

NARRATIVE: CASE EVENT DATE: 20141022
